FAERS Safety Report 4433926-3 (Version None)
Quarter: 2004Q3

REPORT INFORMATION
  Report Type: 
  Country: None (occurrence: None)
  Receive Date: 20040825
  Receipt Date: 20040825
  Transmission Date: 20050211
  Serious: Yes (Disabling, Other)
  Sender: FDA-Public Use
  Company Number: None

PATIENT
  Age: 27 Year
  Sex: Female
  Weight: 81.6475 kg

DRUGS (2)
  1. PREDNISONE [Suspect]
     Indication: ASTHMA
     Dosage: OVER 200 MG IV IV
     Route: 042
     Dates: start: 20000101, end: 20030104
  2. SOLU-MEDROL [Suspect]
     Indication: MYCOTIC ALLERGY
     Dosage: 20-100 MG BY MOUTH ORAL
     Route: 048
     Dates: start: 20000101, end: 20030104

REACTIONS (1)
  - NUCLEAR MAGNETIC RESONANCE IMAGING ABNORMAL [None]
